FAERS Safety Report 22274881 (Version 1)
Quarter: 2023Q2

REPORT INFORMATION
  Report Type: Spontaneous
  Country: US (occurrence: US)
  Receive Date: 20230502
  Receipt Date: 20230502
  Transmission Date: 20230722
  Serious: No
  Sender: FDA-Public Use
  Company Number: US-RVL_Pharmaceuticals-USA-POI1255202300033

PATIENT
  Sex: Female

DRUGS (1)
  1. UPNEEQ [Suspect]
     Active Substance: OXYMETAZOLINE HYDROCHLORIDE
     Indication: Eyelid ptosis
     Dosage: OS
     Route: 047
     Dates: start: 202212, end: 20230113

REACTIONS (4)
  - Cellulitis [Recovering/Resolving]
  - Dry eye [Recovering/Resolving]
  - Ocular hyperaemia [Recovering/Resolving]
  - Blepharitis [Recovering/Resolving]

NARRATIVE: CASE EVENT DATE: 20230101
